FAERS Safety Report 23149087 (Version 1)
Quarter: 2023Q4

REPORT INFORMATION
  Report Type: Spontaneous
  Country: DE (occurrence: DE)
  Receive Date: 20231106
  Receipt Date: 20231106
  Transmission Date: 20240110
  Serious: Yes (Other)
  Sender: FDA-Public Use
  Company Number: None

PATIENT
  Age: 37 Year
  Sex: Male
  Weight: 75 kg

DRUGS (1)
  1. FINASTERIDE [Suspect]
     Active Substance: FINASTERIDE
     Indication: Alopecia
     Dosage: 1 MILLIGRAM, QD, DAILY
     Route: 048
     Dates: start: 20051010, end: 20101012

REACTIONS (2)
  - Erectile dysfunction [Recovered/Resolved with Sequelae]
  - Peyronie^s disease [Recovered/Resolved with Sequelae]

NARRATIVE: CASE EVENT DATE: 20211110
